FAERS Safety Report 6899184-5 (Version None)
Quarter: 2010Q3

REPORT INFORMATION
  Report Type: 
  Country: None (occurrence: None)
  Receive Date: 20100802
  Receipt Date: 20080123
  Transmission Date: 20110219
  Serious: No
  Sender: FDA-Public Use
  Company Number: US-PFIZER INC-2007099989

PATIENT
  Sex: Female
  Weight: 74.8 kg

DRUGS (9)
  1. LYRICA [Suspect]
     Indication: COMPLEX REGIONAL PAIN SYNDROME
  2. LYRICA [Suspect]
     Indication: CHRONIC OBSTRUCTIVE PULMONARY DISEASE
  3. TOPAMAX [Concomitant]
  4. OXYCONTIN [Concomitant]
  5. SYNTHROID [Concomitant]
  6. DRUG, UNSPECIFIED [Concomitant]
  7. PREVACID [Concomitant]
  8. MIRALAX [Concomitant]
  9. HEPAGRISEVIT FORTE-N TABLET [Concomitant]

REACTIONS (5)
  - ANTINUCLEAR ANTIBODY INCREASED [None]
  - COMPLEX REGIONAL PAIN SYNDROME [None]
  - INCREASED APPETITE [None]
  - RHEUMATOID FACTOR INCREASED [None]
  - WEIGHT INCREASED [None]
